FAERS Safety Report 8017121-7 (Version None)
Quarter: 2012Q1

REPORT INFORMATION
  Report Type: 
  Country: None (occurrence: None)
  Receive Date: 20120102
  Receipt Date: 20111223
  Transmission Date: 20120608
  Serious: Yes (Death)
  Sender: FDA-Public Use
  Company Number: CA-ROCHE-1026478

PATIENT
  Sex: Male
  Weight: 79.4 kg

DRUGS (7)
  1. ZANTAC [Concomitant]
  2. AVASTIN [Suspect]
     Indication: GLIOBLASTOMA
     Route: 042
     Dates: start: 20110405
  3. AVASTIN [Suspect]
     Route: 042
     Dates: start: 20110916, end: 20111104
  4. DECADRON [Concomitant]
  5. KEPPRA [Concomitant]
  6. AVASTIN [Suspect]
     Route: 042
     Dates: start: 20110808
  7. FRISIUM [Concomitant]

REACTIONS (1)
  - DEATH [None]
